FAERS Safety Report 6551388-7 (Version None)
Quarter: 2010Q1

REPORT INFORMATION
  Report Type: 
  Country: None (occurrence: None)
  Receive Date: 20100120
  Receipt Date: 20100106
  Transmission Date: 20100710
  Serious: Yes (Other)
  Sender: FDA-Public Use
  Company Number: POMP-1000734

PATIENT
  Age: 62 Year
  Sex: Female
  Weight: 52 kg

DRUGS (2)
  1. MYOZYME [Suspect]
     Indication: GLYCOGEN STORAGE DISEASE TYPE II
     Dosage: 1100 MG, INTRAVENOUS
     Route: 042
     Dates: start: 20061221, end: 20090930
  2. CANDESARTAN CILEXETIL [Concomitant]

REACTIONS (7)
  - DISEASE PROGRESSION [None]
  - DRUG INEFFECTIVE [None]
  - GLYCOGEN STORAGE DISEASE TYPE II [None]
  - MUSCULAR WEAKNESS [None]
  - MYALGIA [None]
  - SLUGGISHNESS [None]
  - SWOLLEN TONGUE [None]
